FAERS Safety Report 9414021 (Version 1)
Quarter: 2013Q3

REPORT INFORMATION
  Report Type: Spontaneous
  Country: FR (occurrence: None)
  Receive Date: 20130703
  Receipt Date: 20130703
  Transmission Date: 20140515
  Serious: Yes (Hospitalization, Other)
  Sender: FDA-Public Use
  Company Number: OTH-PAT-2013008

PATIENT
  Age: 29 Month
  Sex: Female

DRUGS (1)
  1. CARBAGLU (CARGLUMIC ACID) [Suspect]
     Indication: AMINO ACID METABOLISM DISORDER
     Route: 048
     Dates: start: 20110521

REACTIONS (3)
  - Urinary tract infection [None]
  - Nausea [None]
  - Vomiting [None]
